FAERS Safety Report 19760567 (Version 2)
Quarter: 2021Q3

REPORT INFORMATION
  Report Type: Spontaneous
  Country: JP (occurrence: JP)
  Receive Date: 20210830
  Receipt Date: 20210922
  Transmission Date: 20211014
  Serious: Yes (Other)
  Sender: FDA-Public Use
  Company Number: JP-APOTEX-2021AP039749

PATIENT
  Age: 20 Year
  Sex: Male

DRUGS (10)
  1. PAXIL [Suspect]
     Active Substance: PAROXETINE HYDROCHLORIDE
     Dosage: 7.5 MILLIGRAM
     Route: 065
     Dates: start: 20210810
  2. PAXIL CR [Suspect]
     Active Substance: PAROXETINE HYDROCHLORIDE
     Indication: PANIC DISORDER
     Dosage: 12.5 MILLIGRAM
     Route: 065
     Dates: start: 20210522
  3. PAXIL CR [Suspect]
     Active Substance: PAROXETINE HYDROCHLORIDE
     Dosage: 12.5 MILLIGRAM
     Route: 065
     Dates: start: 20210706
  4. PAXIL [Suspect]
     Active Substance: PAROXETINE HYDROCHLORIDE
     Dosage: 10 MILLIGRAM
     Route: 065
     Dates: start: 20210726
  5. PAXIL [Suspect]
     Active Substance: PAROXETINE HYDROCHLORIDE
     Dosage: 20 MILLIGRAM
     Route: 065
     Dates: start: 20210527
  6. PAXIL [Suspect]
     Active Substance: PAROXETINE HYDROCHLORIDE
     Indication: PANIC DISORDER
     Dosage: 10 MILLIGRAM
     Route: 048
     Dates: start: 20210513
  7. PAXIL [Suspect]
     Active Substance: PAROXETINE HYDROCHLORIDE
     Dosage: UNK
     Route: 065
     Dates: start: 202106
  8. DEPAS [ETIZOLAM] [Suspect]
     Active Substance: ETIZOLAM
     Indication: PANIC DISORDER
     Dosage: 1 MILLIGRAM, QD
     Route: 065
     Dates: end: 20210731
  9. PAXIL [Suspect]
     Active Substance: PAROXETINE HYDROCHLORIDE
     Dosage: 5 MILLIGRAM
     Route: 065
     Dates: start: 20210720
  10. PAXIL [Suspect]
     Active Substance: PAROXETINE HYDROCHLORIDE
     Dosage: 10 MILLIGRAM
     Route: 065
     Dates: start: 202108

REACTIONS (10)
  - Discomfort [Unknown]
  - Drug dose titration not performed [Unknown]
  - Withdrawal syndrome [Unknown]
  - Vasodilatation [Unknown]
  - Rash [Unknown]
  - Pruritus [Unknown]
  - Feeling abnormal [Unknown]
  - Eye pain [Recovered/Resolved]
  - Toxicity to various agents [Unknown]
  - Photophobia [Recovered/Resolved]

NARRATIVE: CASE EVENT DATE: 20210730
